FAERS Safety Report 8898410 (Version 2)
Quarter: 2013Q1

REPORT INFORMATION
  Report Type: Report from Study
  Country: JP (occurrence: JP)
  Receive Date: 20121109
  Receipt Date: 20130124
  Transmission Date: 20140127
  Serious: Yes (Hospitalization)
  Sender: FDA-Public Use
  Company Number: JP-009507513-1211JPN001764

PATIENT
  Age: 66 Year
  Sex: Male
  Weight: 63 kg

DRUGS (31)
  1. PEGINTRON [Suspect]
     Indication: CHRONIC HEPATITIS C
     Dosage: 100 MICROGRAM PER KILOGRAM, QW
     Route: 058
  2. PEGINTRON [Suspect]
     Dosage: DAILY DOSE UNKNOWN
     Route: 058
  3. PEGINTRON [Suspect]
     Dosage: 80 MICROGRAM PER KILOGRAM, QW
     Route: 058
     Dates: start: 20121020, end: 20121026
  4. PEGINTRON [Suspect]
     Dosage: 60 MICROGRAM PER KILOGRAM, UNK
     Route: 058
     Dates: start: 20121027, end: 20121101
  5. PEGINTRON [Suspect]
     Dosage: 80 MICROGRAM PER KILOGRAM, QW
     Route: 058
     Dates: start: 20121102
  6. PEGINTRON [Suspect]
     Dosage: UNK
  7. REBETOL [Suspect]
     Indication: CHRONIC HEPATITIS C
     Dosage: 800 MG, QD
     Route: 048
  8. REBETOL [Suspect]
     Dosage: 600 MG AND 800 MG
     Route: 048
     Dates: start: 20120825
  9. REBETOL [Suspect]
     Dosage: 600 MG, QD
     Route: 048
     Dates: start: 20120901, end: 20120907
  10. REBETOL [Suspect]
     Dosage: 400 MG, QD
     Route: 048
     Dates: start: 20120908, end: 20120914
  11. REBETOL [Suspect]
     Dosage: 200 MG, QD
     Route: 048
     Dates: start: 20120915, end: 20120928
  12. REBETOL [Suspect]
     Dosage: 400 MG, QD
     Route: 048
     Dates: start: 20120929
  13. REBETOL [Suspect]
     Dosage: 400 MG, QD
     Route: 048
     Dates: start: 20121006, end: 20121012
  14. REBETOL [Suspect]
     Dosage: 200MG AND 400MG ONCE EVERY 2 DAYS
     Route: 048
     Dates: start: 20121013, end: 20121019
  15. REBETOL [Suspect]
     Dosage: 200 MG, QD
     Route: 048
     Dates: start: 20121020, end: 20121109
  16. REBETOL [Suspect]
     Dosage: 200MG AND 400MG ONCE EVERY 2 DAYS
     Route: 048
     Dates: start: 20121110, end: 20121116
  17. REBETOL [Suspect]
     Dosage: 400 MG, QD
     Route: 048
     Dates: start: 20121117
  18. REBETOL [Suspect]
     Dosage: UNK
  19. TELAVIC [Suspect]
     Indication: CHRONIC HEPATITIS C
     Dosage: 2250 MG, QD
     Route: 048
     Dates: start: 20120714
  20. TELAVIC [Suspect]
     Dosage: 2000 MG, QD
     Route: 048
     Dates: start: 20120915, end: 20120922
  21. TELAVIC [Suspect]
     Dosage: 2250 MG, QD
     Route: 048
     Dates: start: 20120922
  22. TELAVIC [Suspect]
     Dosage: UNK
  23. GLUTAMEAL [Concomitant]
     Dosage: DAILY DOSE UNKNOWN, FORMULATION:POR
     Route: 048
  24. ALCENOL [Concomitant]
     Dosage: DAILY DOSE UNKNOWN, FORMULATION:POR
     Route: 048
  25. GOODMIN [Concomitant]
     Dosage: DAILY DOSE UNKNOWN, FORMULATION:POR
     Route: 048
  26. DIOVAN [Concomitant]
     Dosage: DAILY DOSE UNKNOWN, FORMULATION:POR, CHANGED FROM AMUROPIGEN
     Route: 048
     Dates: start: 20120714
  27. ICOSAPENT ETHYL [Concomitant]
     Indication: PROPHYLAXIS
     Dosage: DAILY DOSE UNKNOWN
     Route: 048
     Dates: start: 20120825
  28. SALOBEL [Concomitant]
     Dosage: FORMULATION:POR, DAILY DOSE UNKNOWN
     Route: 048
     Dates: start: 20120915
  29. LOXOPROFEN [Concomitant]
     Indication: PYREXIA
     Dosage: AS NEEDED
     Route: 048
  30. HIBON [Concomitant]
     Indication: STOMATITIS
     Dosage: FORMULATION:POR, DAILY DOSE UNKNOWN
     Dates: start: 20121013
  31. APHTASOLON [Concomitant]
     Indication: STOMATITIS
     Dosage: DAILY DOSE UNKNOWN, AS NEEDED
     Route: 061
     Dates: start: 20121013

REACTIONS (1)
  - Anaemia [Unknown]
